FAERS Safety Report 7295407-1 (Version None)
Quarter: 2011Q1

REPORT INFORMATION
  Report Type: 
  Country: None (occurrence: None)
  Receive Date: 20110203
  Receipt Date: 20110127
  Transmission Date: 20110831
  Serious: Yes (Death, Hospitalization)
  Sender: FDA-Public Use
  Company Number: IDA-00490

PATIENT
  Age: 40 Year
  Sex: Female

DRUGS (3)
  1. PROPRANOLOL [Suspect]
     Dosage: 5.8 G ONCE
     Route: 048
  2. NITRAZEPAM [Concomitant]
  3. RISPERDONE [Concomitant]

REACTIONS (7)
  - BRADYCARDIA [None]
  - SHOCK [None]
  - ATRIOVENTRICULAR BLOCK FIRST DEGREE [None]
  - HYPERLACTACIDAEMIA [None]
  - ELECTROCARDIOGRAM QRS COMPLEX PROLONGED [None]
  - TOXICITY TO VARIOUS AGENTS [None]
  - MULTI-ORGAN FAILURE [None]
